FAERS Safety Report 25750397 (Version 1)
Quarter: 2025Q3

REPORT INFORMATION
  Report Type: Spontaneous
  Country: US (occurrence: None)
  Receive Date: 20250829
  Receipt Date: 20250829
  Transmission Date: 20251020
  Serious: Yes (Hospitalization, Other)
  Sender: FDA-CTU
  Company Number: None

PATIENT
  Age: 58 Year
  Sex: Male
  Weight: 79.65 kg

DRUGS (4)
  1. REGLAN [Suspect]
     Active Substance: METOCLOPRAMIDE HYDROCHLORIDE
     Indication: Nausea
     Dosage: OTHER QUANTITY : 30 TABLET(S);?FREQUENCY : DAILY;?
     Route: 048
     Dates: start: 20250727, end: 20250801
  2. METHADONE [Concomitant]
     Active Substance: METHADONE HYDROCHLORIDE
  3. B12 [Concomitant]
  4. MAGNESIUM [Concomitant]
     Active Substance: MAGNESIUM

REACTIONS (7)
  - Restlessness [None]
  - Akathisia [None]
  - Anxiety [None]
  - Substance-induced psychotic disorder [None]
  - Adverse drug reaction [None]
  - Discomfort [None]
  - Sleep disorder [None]

NARRATIVE: CASE EVENT DATE: 20250727
